FAERS Safety Report 6418124-6 (Version None)
Quarter: 2009Q4

REPORT INFORMATION
  Report Type: 
  Country: None (occurrence: None)
  Receive Date: 20091028
  Receipt Date: 20091022
  Transmission Date: 20100525
  Serious: Yes (Other)
  Sender: FDA-Public Use
  Company Number: US-BRACCO-003619

PATIENT
  Sex: Female

DRUGS (7)
  1. MULTIHANCE [Suspect]
     Indication: DIAGNOSTIC PROCEDURE
     Route: 065
     Dates: start: 20070208, end: 20070208
  2. MULTIHANCE [Suspect]
     Route: 065
     Dates: start: 20070517, end: 20070517
  3. MULTIHANCE [Suspect]
     Route: 065
     Dates: start: 20070920, end: 20070920
  4. PROHANCE [Suspect]
     Indication: DIAGNOSTIC PROCEDURE
     Route: 065
  5. MAGNEVIST [Suspect]
     Indication: DIAGNOSTIC PROCEDURE
     Route: 065
  6. OMNISCAN [Suspect]
     Indication: DIAGNOSTIC PROCEDURE
     Route: 065
     Dates: start: 20050915, end: 20050915
  7. OPTIMARK [Suspect]
     Indication: DIAGNOSTIC PROCEDURE
     Route: 065

REACTIONS (1)
  - NEPHROGENIC SYSTEMIC FIBROSIS [None]
